FAERS Safety Report 19130328 (Version 1)
Quarter: 2021Q2

REPORT INFORMATION
  Report Type: Spontaneous
  Country: CN (occurrence: CN)
  Receive Date: 20210414
  Receipt Date: 20210414
  Transmission Date: 20210717
  Serious: Yes (Other)
  Sender: FDA-Public Use
  Company Number: CN-BAXTER-2021BAX006954

PATIENT
  Age: 48 Year
  Sex: Female
  Weight: 60 kg

DRUGS (5)
  1. SODIUM CHLORIDE. [Suspect]
     Active Substance: SODIUM CHLORIDE
     Indication: MEDICATION DILUTION
     Dosage: SODIUM CHLORIDE INJECTION 0.9% 250ML + GASTRODIN INJECTION 0.6G
     Route: 041
     Dates: start: 20210325, end: 20210325
  2. SODIUM CHLORIDE. [Suspect]
     Active Substance: SODIUM CHLORIDE
     Dosage: SODIUM CHLORIDE INJECTION 0.9% 100ML + DEXAMETHASONE SODIUM PHOSPHATE 7 MG
     Route: 041
     Dates: start: 20210325, end: 20210325
  3. DEXAMETHASONE SODIUM PHOSPHATE. [Suspect]
     Active Substance: DEXAMETHASONE SODIUM PHOSPHATE
     Indication: MENIERE^S DISEASE
     Dosage: SODIUM CHLORIDE INJECTION 0.9% 100ML + DEXAMETHASONE SODIUM PHOSPHATE 7 MG
     Route: 041
     Dates: start: 20210325, end: 20210325
  4. GASTRODIN. [Suspect]
     Active Substance: GASTRODIN
     Indication: MENIERE^S DISEASE
     Dosage: SODIUM CHLORIDE INJECTION 0.9% 250ML + GASTRODIN INJECTION 0.6G
     Route: 041
     Dates: start: 20210325, end: 20210325
  5. 20% MANNITOL INJECTION [Suspect]
     Active Substance: MANNITOL
     Indication: MENIERE^S DISEASE
     Route: 041
     Dates: start: 20210325, end: 20210325

REACTIONS (2)
  - Rash [Recovering/Resolving]
  - Pruritus [Recovering/Resolving]

NARRATIVE: CASE EVENT DATE: 20210325
